FAERS Safety Report 4374360-4 (Version None)
Quarter: 2004Q2

REPORT INFORMATION
  Report Type: 
  Country: None (occurrence: None)
  Receive Date: 20040608
  Receipt Date: 20040608
  Transmission Date: 20050107
  Serious: Yes (Hospitalization)
  Sender: FDA-Public Use
  Company Number: None

PATIENT
  Age: 63 Year
  Sex: Male
  Weight: 76.2043 kg

DRUGS (1)
  1. COUMADIN [Suspect]
     Indication: INTRACARDIAC THROMBUS
     Dosage: 10 MG DAILY ORAL
     Route: 048

REACTIONS (9)
  - ASTHENIA [None]
  - BLOOD PRESSURE ORTHOSTATIC [None]
  - DIZZINESS [None]
  - FAECES DISCOLOURED [None]
  - HAEMATOCRIT DECREASED [None]
  - HAEMOGLOBIN DECREASED [None]
  - INTERNATIONAL NORMALISED RATIO INCREASED [None]
  - MYOCARDIAL INFARCTION [None]
  - RECTAL HAEMORRHAGE [None]
